FAERS Safety Report 10171978 (Version 3)
Quarter: 2014Q2

REPORT INFORMATION
  Report Type: Spontaneous
  Country: JP (occurrence: JP)
  Receive Date: 20140515
  Receipt Date: 20140516
  Transmission Date: 20141212
  Serious: Yes (Hospitalization)
  Sender: FDA-Public Use
  Company Number: JP-PFIZER INC-2014052887

PATIENT
  Age: 67 Year
  Sex: Female
  Weight: 51.9 kg

DRUGS (15)
  1. LYRICA [Suspect]
     Indication: NEURALGIA
     Dosage: 75 MG, 1X/DAY
     Route: 048
     Dates: start: 20140213, end: 20140218
  2. OXYCONTIN [Concomitant]
     Indication: CANCER PAIN
     Dosage: 20 MG, 2X/DAY
     Route: 048
     Dates: start: 20131121
  3. NOVAMIN [Concomitant]
     Indication: PROPHYLAXIS OF NAUSEA AND VOMITING
     Dosage: 5 MG, 3X/DAY
     Route: 048
     Dates: start: 20131121
  4. MAGMITT [Concomitant]
     Indication: CONSTIPATION PROPHYLAXIS
     Dosage: 660 MG, 3X/DAY
     Route: 048
     Dates: start: 20131121
  5. PARIET [Concomitant]
     Indication: PROPHYLAXIS AGAINST GASTROINTESTINAL ULCER
     Dosage: 10 MG, 1X/DAY
     Route: 048
     Dates: start: 20131121
  6. LANDSEN [Concomitant]
     Indication: NEURALGIA
     Dosage: 0.5 MG, 1X/DAY
     Route: 048
     Dates: start: 20131210
  7. CALONAL [Concomitant]
     Indication: CANCER PAIN
     Dosage: 400 MG, 3X/DAY
     Route: 048
     Dates: start: 20140107
  8. SPIRIVA [Concomitant]
     Indication: CHRONIC OBSTRUCTIVE PULMONARY DISEASE
     Dosage: 5.0 UG, SINGLE
     Route: 055
  9. HOKUNALIN [Concomitant]
     Indication: CHRONIC OBSTRUCTIVE PULMONARY DISEASE
     Dosage: 2 MG, 1X/DAY
  10. LOXOPROFEN SODIUM [Concomitant]
     Indication: CANCER PAIN
     Dosage: 60 MG, 3X/DAY
     Route: 048
     Dates: start: 20131121
  11. LASIX [Concomitant]
     Indication: MALIGNANT ASCITES
     Dosage: 20 MG, 1X/DAY
     Route: 048
     Dates: start: 20131213
  12. GEMZAR [Concomitant]
     Indication: GALLBLADDER CANCER
     Dosage: 150 MG, 1X/DAY
     Route: 042
     Dates: start: 20131226, end: 20140204
  13. CISPLATIN [Concomitant]
     Indication: GALLBLADDER CANCER
     Dosage: 35 MG, 1X/DAY
     Route: 042
     Dates: start: 20131226, end: 20140204
  14. GRANISETRON [Concomitant]
     Indication: ANTIEMETIC SUPPORTIVE CARE
     Dosage: 1 MG, 1X/DAY
     Route: 042
     Dates: start: 20131226, end: 20140204
  15. DEXART [Concomitant]
     Indication: ANTIEMETIC SUPPORTIVE CARE
     Dosage: 6.6 MG, 1X/DAY
     Route: 042
     Dates: start: 20131226, end: 20140204

REACTIONS (1)
  - Hypocalcaemia [Recovering/Resolving]
